FAERS Safety Report 14129207 (Version 1)
Quarter: 2017Q4

REPORT INFORMATION
  Report Type: Spontaneous
  Country: NL (occurrence: NL)
  Receive Date: 20171026
  Receipt Date: 20171026
  Transmission Date: 20180321
  Serious: Yes (Death, Hospitalization)
  Sender: FDA-Public Use
  Company Number: NL-TEVA-818039ROM

PATIENT
  Age: 30 Year
  Sex: Male

DRUGS (5)
  1. CLOFAZIMINE [Concomitant]
     Active Substance: CLOFAZIMINE
     Indication: TYPE 2 LEPRA REACTION
     Route: 065
  2. THALIDOMIDE [Suspect]
     Active Substance: THALIDOMIDE
     Indication: TYPE 2 LEPRA REACTION
     Route: 065
  3. PREDNISONE. [Suspect]
     Active Substance: PREDNISONE
     Indication: TYPE 2 LEPRA REACTION
     Route: 065
  4. MINOCIN [Concomitant]
     Active Substance: MINOCYCLINE HYDROCHLORIDE
     Indication: TYPE 2 LEPRA REACTION
     Route: 065
  5. RIFAMPICIN [Concomitant]
     Active Substance: RIFAMPIN
     Indication: TYPE 2 LEPRA REACTION
     Route: 065

REACTIONS (3)
  - Hepatic necrosis [Fatal]
  - Varicella zoster virus infection [Fatal]
  - Haemorrhage [Fatal]
